FAERS Safety Report 21258331 (Version 1)
Quarter: 2022Q3

REPORT INFORMATION
  Report Type: Spontaneous
  Country: US (occurrence: None)
  Receive Date: 20220825
  Receipt Date: 20220825
  Transmission Date: 20221027
  Serious: Yes (Other)
  Sender: FDA-Public Use
  Company Number: None

PATIENT
  Age: 56 Year
  Sex: Female
  Weight: 84.8 kg

DRUGS (8)
  1. TRESIBA [Suspect]
     Active Substance: INSULIN DEGLUDEC
     Dosage: 4 IU ONCE A DAY SUBCUTANEOUS
     Route: 058
     Dates: start: 20220820, end: 20220820
  2. AMITRIPTYLINE [Concomitant]
     Active Substance: AMITRIPTYLINE
     Dates: start: 20210716
  3. Calcium carbonate-Wamin D3 250 mg-3.125 mcg [Concomitant]
     Dates: start: 20220329
  4. CYCLOBENZAPRINE [Concomitant]
     Active Substance: CYCLOBENZAPRINE
     Dates: start: 20210323
  5. FEXOFENADINE HYDROCHLORIDE [Concomitant]
     Active Substance: FEXOFENADINE HYDROCHLORIDE
  6. HYOPHEN [Concomitant]
     Active Substance: BENZOIC ACID\HYOSCYAMINE SULFATE\METHENAMINE\METHYLENE BLUE\PHENYL SALICYLATE
  7. RABEPRAZOLE [Concomitant]
     Active Substance: RABEPRAZOLE
  8. Tradjenta 5 mg [Concomitant]

REACTIONS (5)
  - Chest pain [None]
  - Paraesthesia oral [None]
  - Paraesthesia oral [None]
  - Throat tightness [None]
  - Therapy interrupted [None]

NARRATIVE: CASE EVENT DATE: 20220820
